FAERS Safety Report 9138205 (Version 1)
Quarter: 2013Q1

REPORT INFORMATION
  Report Type: Spontaneous
  Country: IE (occurrence: IE)
  Receive Date: 20130304
  Receipt Date: 20130304
  Transmission Date: 20140127
  Serious: Yes (Hospitalization)
  Sender: FDA-Public Use
  Company Number: IE-BRISTOL-MYERS SQUIBB COMPANY-17407479

PATIENT
  Age: 60 Year
  Sex: Male

DRUGS (10)
  1. AMIKACIN SULFATE [Suspect]
  2. PARACETAMOL [Suspect]
  3. MEROPENEM [Suspect]
     Dates: start: 20121105, end: 20121112
  4. COLOMYCIN [Suspect]
  5. GENTAMICIN [Suspect]
  6. VORICONAZOLE [Suspect]
     Dates: start: 20121101, end: 20121113
  7. LINEZOLID [Suspect]
     Dates: end: 20121113
  8. LIBRIUM [Suspect]
  9. ESOMEPRAZOLE [Suspect]
  10. DIFENE [Suspect]

REACTIONS (3)
  - Renal impairment [Unknown]
  - Hepatic function abnormal [Recovered/Resolved]
  - Hyperhidrosis [Not Recovered/Not Resolved]
